FAERS Safety Report 5209429-5 (Version None)
Quarter: 2006Q4

REPORT INFORMATION
  Report Type: 
  Country: None (occurrence: None)
  Receive Date: 20061101
  Receipt Date: 20060615
  Transmission Date: 20070319
  Serious: No
  Sender: FDA-Public Use
  Company Number: 2006PV015758

PATIENT
  Age: 67 Year
  Sex: Male

DRUGS (6)
  1. SYMLIN [Suspect]
     Indication: DIABETES MELLITUS NON-INSULIN-DEPENDENT
     Dosage: 120 + 60 MCG; TID; SC
     Route: 058
     Dates: start: 20060501
  2. SYMLIN [Suspect]
     Indication: DIABETES MELLITUS NON-INSULIN-DEPENDENT
     Dosage: 120 + 60 MCG; TID; SC
     Route: 058
     Dates: start: 20060501
  3. LANTUS [Concomitant]
  4. GLYBURIDE [Concomitant]
  5. METFORMIN HCL [Concomitant]
  6. AVANDIA [Concomitant]

REACTIONS (2)
  - BLOOD GLUCOSE DECREASED [None]
  - BLOOD GLUCOSE INCREASED [None]
